FAERS Safety Report 14625887 (Version 2)
Quarter: 2018Q2

REPORT INFORMATION
  Report Type: Report from Study
  Country: KR (occurrence: KR)
  Receive Date: 20180312
  Receipt Date: 20180402
  Transmission Date: 20180711
  Serious: Yes (Other)
  Sender: FDA-Public Use
  Company Number: KR-ASTELLAS-2018US011822

PATIENT

DRUGS (14)
  1. MAGNESIUM SULFATE. [Concomitant]
     Active Substance: MAGNESIUM SULFATE
     Indication: MUCOPOLYSACCHARIDOSIS IV
     Route: 042
     Dates: start: 20180214, end: 20180215
  2. MORPHINE SULFATE. [Concomitant]
     Active Substance: MORPHINE SULFATE
     Indication: PROPHYLAXIS
     Dosage: 0.5 MG, IMMEDIATELY
     Route: 042
     Dates: start: 20180214, end: 20180214
  3. TRAMADOL HCL [Concomitant]
     Active Substance: TRAMADOL HYDROCHLORIDE
     Dosage: 15 MG, IMMEDIATELY
     Route: 042
     Dates: start: 20180214, end: 20180214
  4. VIT K1 [Concomitant]
     Active Substance: PHYTONADIONE
     Indication: PROPHYLAXIS
     Route: 042
     Dates: start: 20180215, end: 20180215
  5. SEPTRIN [Concomitant]
     Active Substance: SULFAMETHOXAZOLE\TRIMETHOPRIM
     Indication: PROPHYLAXIS
     Dosage: 0.5 DF, TWICE DAILY
     Route: 048
     Dates: start: 20180215, end: 20180215
  6. ORFIL [Concomitant]
     Active Substance: VALPROATE SODIUM
     Indication: STATUS EPILEPTICUS
     Route: 048
     Dates: start: 201706
  7. SODIUM BICARBONATE. [Concomitant]
     Active Substance: SODIUM BICARBONATE
     Indication: MUCOPOLYSACCHARIDOSIS IV
     Route: 042
     Dates: start: 20180214, end: 20180215
  8. LASIX [Concomitant]
     Active Substance: FUROSEMIDE
     Indication: MUCOPOLYSACCHARIDOSIS IV
     Dosage: 3 MG, IMMEDIATELY
     Route: 042
     Dates: start: 20180214, end: 20180214
  9. ACYCLOVIR                          /00587301/ [Concomitant]
     Active Substance: ACYCLOVIR
     Indication: PROPHYLAXIS
     Route: 042
     Dates: start: 20180215, end: 20180215
  10. MICAFUNGIN [Suspect]
     Active Substance: MICAFUNGIN
     Indication: PROPHYLAXIS
     Dosage: UNK, UNKNOWN FREQ.
     Route: 065
     Dates: start: 20180215, end: 20180215
  11. ALLOPURINOL. [Concomitant]
     Active Substance: ALLOPURINOL
     Indication: PROPHYLAXIS
     Route: 048
     Dates: start: 20180215, end: 20180215
  12. CEFPIRAMIDE [Concomitant]
     Indication: PROPHYLAXIS
     Dosage: 0.3 G, EVERY 8 HOURS
     Route: 042
     Dates: start: 20180214, end: 20180215
  13. TRAMADOL HCL [Concomitant]
     Active Substance: TRAMADOL HYDROCHLORIDE
     Indication: PROPHYLAXIS
     Dosage: 15 MG, IMMEDIATELY
     Route: 042
     Dates: start: 20180214, end: 20180214
  14. PENTOXIFYLLINE. [Concomitant]
     Active Substance: PENTOXIFYLLINE
     Indication: PROPHYLAXIS
     Route: 048
     Dates: start: 20180215, end: 20180215

REACTIONS (1)
  - Pneumonia [Not Recovered/Not Resolved]

NARRATIVE: CASE EVENT DATE: 20180215
